FAERS Safety Report 4560575-9 (Version None)
Quarter: 2005Q1

REPORT INFORMATION
  Report Type: 
  Country: None (occurrence: None)
  Receive Date: 20050125
  Receipt Date: 20050120
  Transmission Date: 20050727
  Serious: Yes (Hospitalization)
  Sender: FDA-Public Use
  Company Number: FR-BRISTOL-MYERS SQUIBB COMPANY-12833554

PATIENT
  Age: 75 Year
  Sex: Male

DRUGS (6)
  1. COAPROVEL [Suspect]
     Indication: HYPERTENSION
     Route: 048
  2. CLAMOXYL [Suspect]
     Indication: ENDOCARDITIS
     Dates: start: 20041105, end: 20041126
  3. TIENAM [Suspect]
     Dates: start: 20041130
  4. VANCOMYCIN [Suspect]
     Indication: ENDOCARDITIS
     Route: 042
     Dates: start: 20041105
  5. PROPOFAN [Concomitant]
     Indication: PAIN IN EXTREMITY
  6. PRAVASTATIN [Concomitant]
     Indication: LIPID METABOLISM DISORDER

REACTIONS (6)
  - CORONARY ARTERY OCCLUSION [None]
  - ENDOCARDITIS [None]
  - EOSINOPHILIA [None]
  - PYREXIA [None]
  - RASH GENERALISED [None]
  - RENAL FAILURE ACUTE [None]
